FAERS Safety Report 14232693 (Version 1)
Quarter: 2017Q4

REPORT INFORMATION
  Report Type: Spontaneous
  Country: US (occurrence: None)
  Receive Date: 20171128
  Receipt Date: 20171128
  Transmission Date: 20180321
  Serious: No
  Sender: FDA-Public Use
  Company Number: None

PATIENT
  Age: 48 Year
  Sex: Female

DRUGS (1)
  1. HUMIRA [Suspect]
     Active Substance: ADALIMUMAB
     Indication: CROHN^S DISEASE
     Route: 058
     Dates: start: 20170619

REACTIONS (5)
  - Insomnia [None]
  - Decreased appetite [None]
  - Pain in extremity [None]
  - Depressed mood [None]
  - Drug ineffective [None]

NARRATIVE: CASE EVENT DATE: 20170827
